FAERS Safety Report 9587241 (Version 2)
Quarter: 2015Q1

REPORT INFORMATION
  Report Type: Spontaneous
  Country: US (occurrence: US)
  Receive Date: 20131003
  Receipt Date: 20150310
  Transmission Date: 20150721
  Serious: Yes (Hospitalization, Other)
  Sender: FDA-Public Use
  Company Number: US-ROCHE-1282514

PATIENT
  Age: 59 Year
  Sex: Female

DRUGS (4)
  1. BONIVA [Suspect]
     Active Substance: IBANDRONATE SODIUM
     Indication: OSTEOPOROSIS
     Route: 048
     Dates: start: 20090316, end: 201006
  2. BONIVA [Suspect]
     Active Substance: IBANDRONATE SODIUM
     Indication: OSTEOPENIA
  3. FOSAMAX [Suspect]
     Active Substance: ALENDRONATE SODIUM
     Indication: OSTEOPENIA
     Dosage: DOSE: 35 MG AND 70 MG
     Route: 048
     Dates: start: 20100416, end: 201210
  4. FOSAMAX [Suspect]
     Active Substance: ALENDRONATE SODIUM
     Indication: OSTEOPOROSIS
     Route: 048
     Dates: start: 1995, end: 201210

REACTIONS (12)
  - Low turnover osteopathy [Unknown]
  - Rib fracture [Unknown]
  - Device failure [Unknown]
  - Comminuted fracture [Unknown]
  - Anxiety [Unknown]
  - Femur fracture [Unknown]
  - Bone loss [Unknown]
  - Emotional distress [Unknown]
  - Periodontal disease [Unknown]
  - Facial bones fracture [Unknown]
  - Depression [Unknown]
  - Oral disorder [Unknown]

NARRATIVE: CASE EVENT DATE: 20090812
